FAERS Safety Report 4913792-X (Version None)
Quarter: 2006Q1

REPORT INFORMATION
  Report Type: 
  Country: None (occurrence: None)
  Receive Date: 20060216
  Receipt Date: 20060209
  Transmission Date: 20060701
  Serious: Yes (Hospitalization)
  Sender: FDA-Public Use
  Company Number: CH-GLAXOSMITHKLINE-B0411279A

PATIENT
  Age: 66 Year
  Sex: Male

DRUGS (10)
  1. DEROXAT [Suspect]
     Dosage: 20MG PER DAY
     Route: 048
  2. PLAVIX [Suspect]
     Dosage: 75MG PER DAY
     Route: 048
     Dates: end: 20051001
  3. MARCOUMAR [Suspect]
     Route: 048
     Dates: end: 20051001
  4. COZAAR [Concomitant]
     Route: 048
  5. MIXTARD HUMAN 70/30 [Concomitant]
     Route: 058
  6. PANTOZOL [Concomitant]
     Dosage: 40MG PER DAY
     Route: 048
  7. ALDACTONE [Concomitant]
     Dosage: 40MG PER DAY
     Route: 048
  8. TORECAN [Concomitant]
     Dosage: 20MG PER DAY
     Route: 048
  9. LEXOTANIL [Concomitant]
     Dosage: 1.5MG PER DAY
     Route: 048
  10. TRACLEER [Concomitant]
     Dosage: 129.08MG PER DAY
     Route: 048

REACTIONS (6)
  - ABDOMINAL PAIN [None]
  - ADENOCARCINOMA [None]
  - ANAEMIA [None]
  - GASTRIC ULCER [None]
  - LYMPHADENOPATHY [None]
  - LYMPHOMA [None]
